FAERS Safety Report 25933554 (Version 1)
Quarter: 2025Q4

REPORT INFORMATION
  Report Type: Spontaneous
  Country: US (occurrence: US)
  Receive Date: 20251017
  Receipt Date: 20251017
  Transmission Date: 20260117
  Serious: Yes (Other)
  Sender: TEVA
  Company Number: US-TEVA-VS-3380533

PATIENT
  Age: 60 Year
  Sex: Female

DRUGS (1)
  1. DEUTETRABENAZINE [Suspect]
     Active Substance: DEUTETRABENAZINE
     Indication: Tardive dyskinesia
     Dosage: INITIATION AND TITRATION UP TO 18 MG BID
     Route: 065
     Dates: start: 20250701

REACTIONS (3)
  - Suicidal ideation [Unknown]
  - Anxiety [Unknown]
  - Depressive symptom [Unknown]

NARRATIVE: CASE EVENT DATE: 20250101
